FAERS Safety Report 10337788 (Version 1)
Quarter: 2014Q3

REPORT INFORMATION
  Report Type: Spontaneous
  Country: US (occurrence: US)
  Receive Date: 20140724
  Receipt Date: 20140724
  Transmission Date: 20150326
  Serious: Yes (Disabling)
  Sender: FDA-Public Use
  Company Number: US-DRREDDYS-USA/USA/14/0042015

PATIENT
  Age: 68 Year
  Sex: Male
  Weight: 89.8 kg

DRUGS (3)
  1. LEVOFLOXACIN TABLETS 500 MG [Suspect]
     Active Substance: LEVOFLOXACIN
     Indication: URINARY TRACT INFECTION
     Route: 048
  2. ATORVASTATIN [Concomitant]
     Active Substance: ATORVASTATIN
     Indication: PRODUCT USED FOR UNKNOWN INDICATION
     Route: 065
  3. CLARINEX [Concomitant]
     Active Substance: DESLORATADINE
     Indication: PRODUCT USED FOR UNKNOWN INDICATION
     Route: 065

REACTIONS (4)
  - Dysstasia [Recovering/Resolving]
  - Tendonitis [Recovering/Resolving]
  - Gait disturbance [Recovering/Resolving]
  - Arthralgia [Recovering/Resolving]
